FAERS Safety Report 6236181-7 (Version None)
Quarter: 2009Q2

REPORT INFORMATION
  Report Type: 
  Country: None (occurrence: None)
  Receive Date: 20090619
  Receipt Date: 20090604
  Transmission Date: 20091009
  Serious: Yes (Hospitalization)
  Sender: FDA-Public Use
  Company Number: US-PFIZER INC-2009227495

PATIENT
  Age: 64 Year
  Sex: Male

DRUGS (1)
  1. LINEZOLID [Suspect]
     Indication: RETROPERITONEAL ABSCESS

REACTIONS (1)
  - PURPURA [None]
